FAERS Safety Report 11005727 (Version 4)
Quarter: 2015Q3

REPORT INFORMATION
  Report Type: Spontaneous
  Country: US (occurrence: US)
  Receive Date: 20150409
  Receipt Date: 20150716
  Transmission Date: 20151125
  Serious: Yes (Hospitalization, Disabling, Other)
  Sender: FDA-Public Use
  Company Number: US-MERCK-1504USA003810

PATIENT
  Sex: Female
  Weight: 91.16 kg

DRUGS (2)
  1. JANUVIA [Suspect]
     Active Substance: SITAGLIPTIN PHOSPHATE
     Indication: TYPE 2 DIABETES MELLITUS
     Dosage: 25 MG, QD
     Route: 048
     Dates: start: 20110625, end: 201108
  2. VICTOZA [Suspect]
     Active Substance: LIRAGLUTIDE
     Indication: TYPE 2 DIABETES MELLITUS
     Dosage: 0.6 MG, QD
     Dates: start: 201109, end: 201304

REACTIONS (15)
  - Benign neoplasm of islets of Langerhans [Unknown]
  - Hypercholesterolaemia [Unknown]
  - Vomiting [Unknown]
  - Nausea [Unknown]
  - Thyroid operation [Unknown]
  - Blood triglycerides increased [Unknown]
  - Biopsy thyroid gland [Unknown]
  - Sinus tachycardia [Unknown]
  - Pancreatic operation [Unknown]
  - Gingivitis [Unknown]
  - Haemorrhagic ovarian cyst [Unknown]
  - Periodontal disease [Unknown]
  - Biopsy pancreas [Unknown]
  - Thyroid disorder [Unknown]
  - Abdominal pain [Unknown]

NARRATIVE: CASE EVENT DATE: 20120402
